FAERS Safety Report 9364901 (Version 2)
Quarter: 2013Q3

REPORT INFORMATION
  Report Type: Spontaneous
  Country: US (occurrence: US)
  Receive Date: 20130624
  Receipt Date: 20130701
  Transmission Date: 20140515
  Serious: No
  Sender: FDA-Public Use
  Company Number: US-009507513-1306USA007727

PATIENT
  Sex: Female

DRUGS (1)
  1. IMPLANON [Suspect]
     Indication: CONTRACEPTION
     Dosage: ONE DOSE PER THREE YEARS
     Route: 059
     Dates: start: 20121024, end: 20130612

REACTIONS (2)
  - Device breakage [Recovered/Resolved]
  - No adverse event [Unknown]
